FAERS Safety Report 6590717-5 (Version None)
Quarter: 2010Q1

REPORT INFORMATION
  Report Type: 
  Country: None (occurrence: None)
  Receive Date: 20100219
  Receipt Date: 20100211
  Transmission Date: 20100710
  Serious: Yes (Other)
  Sender: FDA-Public Use
  Company Number: US-JNJFOC-20100206667

PATIENT
  Sex: Male

DRUGS (2)
  1. TYLENOL-500 [Suspect]
  2. TYLENOL-500 [Suspect]
     Indication: MUSCULOSKELETAL PAIN

REACTIONS (1)
  - HAEMATOCHEZIA [None]
